FAERS Safety Report 25660897 (Version 1)
Quarter: 2025Q3

REPORT INFORMATION
  Report Type: Spontaneous
  Country: US (occurrence: US)
  Receive Date: 20250808
  Receipt Date: 20250808
  Transmission Date: 20251021
  Serious: No
  Sender: AMGEN
  Company Number: US-AMGEN-USASP2025154643

PATIENT
  Age: 46 Year
  Sex: Male
  Weight: 77 kg

DRUGS (18)
  1. TEPEZZA [Suspect]
     Active Substance: TEPROTUMUMAB-TRBW
     Indication: Product used for unknown indication
     Dosage: 787 MILLIGRAM, Q3WK (10MG/KG, FIRST INFUSION)
     Route: 040
     Dates: start: 20230329
  2. TEPEZZA [Suspect]
     Active Substance: TEPROTUMUMAB-TRBW
     Dosage: 1540 MILLIGRAM, Q3WK (20MG/KG, SECOND INFUSION)
     Route: 040
     Dates: start: 20230419
  3. TEPEZZA [Suspect]
     Active Substance: TEPROTUMUMAB-TRBW
     Dosage: 1552 MILLIGRAM, Q3WK (20MG/KG, THIRD INFUSION)
     Route: 040
     Dates: start: 20230510
  4. TEPEZZA [Suspect]
     Active Substance: TEPROTUMUMAB-TRBW
     Dosage: 1512 MILLIGRAM, Q3WK (20MG/KG, FOURTH INFUSION)
     Route: 040
     Dates: start: 20230531
  5. TEPEZZA [Suspect]
     Active Substance: TEPROTUMUMAB-TRBW
     Dosage: 1496 MILLIGRAM, Q3WK (20MG/KG, FIFTH INFUSION)
     Route: 040
     Dates: start: 20230626
  6. TEPEZZA [Suspect]
     Active Substance: TEPROTUMUMAB-TRBW
     Dosage: 1500 MILLIGRAM, Q3WK (20MG/KG, SIXTH INFUSION)
     Route: 040
     Dates: start: 20230718
  7. TEPEZZA [Suspect]
     Active Substance: TEPROTUMUMAB-TRBW
     Dosage: 1500 MILLIGRAM, Q3WK (20MG/KG, SEVENTH INFUSION)
     Route: 040
     Dates: start: 20230808
  8. TEPEZZA [Suspect]
     Active Substance: TEPROTUMUMAB-TRBW
     Dosage: 1466 MILLIGRAM, Q3WK (20MG/KG, EIGHTH INFUSION)
     Route: 040
     Dates: start: 20230831
  9. PREDNISONE [Suspect]
     Active Substance: PREDNISONE
     Indication: Product used for unknown indication
     Dosage: 20 MILLIGRAM, QD (THREE TABLETS EVERY DAY)
     Route: 048
     Dates: start: 202210
  10. Artificial tears [Concomitant]
  11. ATENOLOL [Concomitant]
     Active Substance: ATENOLOL
     Dosage: 50 MILLIGRAM, QD
     Route: 048
  12. METHIMAZOLE [Concomitant]
     Active Substance: METHIMAZOLE
     Dosage: 5 MILLIGRAM, BID
     Route: 048
  13. METHYLPREDNISOLONE [Concomitant]
     Active Substance: METHYLPREDNISOLONE
  14. SODIUM CHLORIDE [Concomitant]
     Active Substance: SODIUM CHLORIDE
  15. NICODERM CQ [Concomitant]
     Active Substance: NICOTINE
     Route: 062
  16. SOLU-MEDROL [Concomitant]
     Active Substance: METHYLPREDNISOLONE SODIUM SUCCINATE
     Dosage: 500 MILLIGRAM, QWK
     Route: 040
  17. TRAZODONE [Concomitant]
     Active Substance: TRAZODONE HYDROCHLORIDE
  18. PROPRANOLOL [Concomitant]
     Active Substance: PROPRANOLOL HYDROCHLORIDE

REACTIONS (11)
  - Blood glucose increased [Unknown]
  - Blood creatinine decreased [Unknown]
  - Thyroxine free increased [Unknown]
  - Blood urea nitrogen/creatinine ratio increased [Unknown]
  - Cystatin C increased [Unknown]
  - Neutrophil percentage increased [Unknown]
  - Lymphocyte percentage increased [Unknown]
  - Neutrophil count increased [Unknown]
  - Depression [Unknown]
  - Headache [Unknown]
  - Muscle spasms [Unknown]

NARRATIVE: CASE EVENT DATE: 20230111
